FAERS Safety Report 13035026 (Version 1)
Quarter: 2016Q4

REPORT INFORMATION
  Report Type: Spontaneous
  Country: GB (occurrence: GB)
  Receive Date: 20161216
  Receipt Date: 20161216
  Transmission Date: 20170207
  Serious: Yes (Other)
  Sender: FDA-Public Use
  Company Number: GB-ELI_LILLY_AND_COMPANY-GB201612003440

PATIENT
  Sex: Male

DRUGS (1)
  1. PROZAC [Suspect]
     Active Substance: FLUOXETINE HYDROCHLORIDE
     Indication: DEPRESSION
     Dosage: UNK, UNKNOWN
     Route: 065
     Dates: start: 199508

REACTIONS (6)
  - Suicide attempt [Unknown]
  - Aggression [Unknown]
  - Homicidal ideation [Unknown]
  - Euphoric mood [Unknown]
  - Abnormal behaviour [Unknown]
  - Physical assault [Unknown]

NARRATIVE: CASE EVENT DATE: 199509
